FAERS Safety Report 20800439 (Version 1)
Quarter: 2022Q2

REPORT INFORMATION
  Report Type: Spontaneous
  Country: SE (occurrence: None)
  Receive Date: 20220509
  Receipt Date: 20220509
  Transmission Date: 20220720
  Serious: Yes (Hospitalization)
  Sender: FDA-Public Use
  Company Number: None

PATIENT
  Age: 47 Year
  Sex: Female

DRUGS (3)
  1. METHOTREXATE [Suspect]
     Active Substance: METHOTREXATE
     Indication: Ankylosing spondylitis
     Dosage: STRENGTH: 2.5 MG, 8 TABLETS 1 TIME/WEEK
     Route: 048
     Dates: start: 20160525
  2. FOLSYRA EVOLAN [Concomitant]
     Dosage: 2/WEEK, FOR THE TIME BEING
     Route: 065
     Dates: start: 20180125, end: 20210330
  3. IBUPROFEN [Concomitant]
     Active Substance: IBUPROFEN
     Dosage: 1-2 WHEN NEEDED, FOR THE TIME BEIGN
     Route: 065
     Dates: start: 20210326

REACTIONS (6)
  - Aspartate aminotransferase increased [Not Recovered/Not Resolved]
  - Blood alkaline phosphatase increased [Not Recovered/Not Resolved]
  - Alanine aminotransferase increased [Not Recovered/Not Resolved]
  - Liver disorder [Not Recovered/Not Resolved]
  - Blood bilirubin increased [Not Recovered/Not Resolved]
  - Product use in unapproved indication [Unknown]

NARRATIVE: CASE EVENT DATE: 20220330
